FAERS Safety Report 8842568 (Version 1)
Quarter: 2012Q4

REPORT INFORMATION
  Report Type: 
  Country: US (occurrence: US)
  Receive Date: 20121016
  Receipt Date: 20121016
  Transmission Date: 20130627
  Serious: Yes (Other)
  Sender: FDA-Public Use
  Company Number: US-ROCHE-1122205

PATIENT
  Sex: Female
  Weight: 59.52 kg

DRUGS (1)
  1. NUTROPIN [Suspect]
     Indication: DWARFISM
     Route: 065

REACTIONS (4)
  - Hip fracture [Unknown]
  - Malaise [Unknown]
  - Increased appetite [Unknown]
  - Fall [Unknown]
